FAERS Safety Report 8793345 (Version 2)
Quarter: 2013Q4

REPORT INFORMATION
  Report Type: Spontaneous
  Country: AU (occurrence: AU)
  Receive Date: 20120917
  Receipt Date: 20131128
  Transmission Date: 20140711
  Serious: Yes (Hospitalization, Other)
  Sender: FDA-Public Use
  Company Number: AU-BRISTOL-MYERS SQUIBB COMPANY-16938375

PATIENT
  Sex: 0

DRUGS (1)
  1. SPRYCEL [Suspect]

REACTIONS (1)
  - Cardiac disorder [Unknown]
